FAERS Safety Report 21994053 (Version 5)
Quarter: 2023Q2

REPORT INFORMATION
  Report Type: Spontaneous
  Country: US (occurrence: US)
  Receive Date: 20230215
  Receipt Date: 20230523
  Transmission Date: 20230722
  Serious: Yes (Hospitalization)
  Sender: FDA-Public Use
  Company Number: US-AMERICAN REGENT INC-2023000317

PATIENT
  Age: 68 Year
  Sex: Female
  Weight: 111 kg

DRUGS (5)
  1. VENOFER [Suspect]
     Active Substance: IRON SUCROSE
     Indication: Anaemia
     Dosage: 50 MILLIGRAM, IV PUSH THROUGH VENOUS CHAMBER
     Dates: start: 20211119
  2. VENOFER [Suspect]
     Active Substance: IRON SUCROSE
     Dosage: 50 MILLIGRAM, IV PUSH THROUGH VENOUS CHAMBER
     Dates: start: 20221213, end: 20221213
  3. MIRCERA [Suspect]
     Active Substance: METHOXY POLYETHYLENE GLYCOL-EPOETIN BETA
     Indication: Anaemia
     Dosage: 150 MICROGRAM, 1 IN 2 WK, 1ST DOSE OF MIRCERA
     Route: 042
     Dates: start: 20221213, end: 20221213
  4. CALCITRIOL [Concomitant]
     Active Substance: CALCITRIOL
     Indication: Product used for unknown indication
     Dosage: 2 MICROGRAM
     Route: 065
     Dates: start: 20221213
  5. CINACALCET [Concomitant]
     Active Substance: CINACALCET
     Indication: Product used for unknown indication
     Dosage: 60 MILLIGRAM
     Route: 065
     Dates: start: 20221213

REACTIONS (1)
  - Drug hypersensitivity [Recovered/Resolved]

NARRATIVE: CASE EVENT DATE: 20221213
